FAERS Safety Report 6511066-7 (Version None)
Quarter: 2009Q4

REPORT INFORMATION
  Report Type: 
  Country: None (occurrence: None)
  Receive Date: 20091222
  Receipt Date: 20090220
  Transmission Date: 20100525
  Serious: No
  Sender: FDA-Public Use
  Company Number: US-ASTRAZENECA-2009UW04807

PATIENT
  Sex: Male

DRUGS (3)
  1. CRESTOR [Suspect]
     Indication: BLOOD CHOLESTEROL INCREASED
     Route: 048
  2. NORVASC [Concomitant]
     Indication: HYPERTENSION
  3. COUMADIN [Concomitant]

REACTIONS (4)
  - DIZZINESS [None]
  - HYPERSENSITIVITY [None]
  - NASAL CONGESTION [None]
  - SINUS CONGESTION [None]
